FAERS Safety Report 7056193-3 (Version None)
Quarter: 2010Q4

REPORT INFORMATION
  Report Type: 
  Country: None (occurrence: None)
  Receive Date: 20101021
  Receipt Date: 20101015
  Transmission Date: 20110411
  Serious: Yes (Other)
  Sender: FDA-Public Use
  Company Number: US-TEVA-251829USA

PATIENT
  Sex: Male

DRUGS (10)
  1. VINCRISTINE SULFATE 1MG/ML;1MG/1 ML VIAL;2MG/2ML VIAL [Suspect]
     Indication: MULTIPLE MYELOMA
     Dates: start: 20060101
  2. INTERFERON [Suspect]
     Indication: MULTIPLE MYELOMA
  3. REVLIMID [Suspect]
     Indication: MULTIPLE MYELOMA
     Route: 048
     Dates: start: 20070301
  4. REVLIMID [Suspect]
     Route: 048
     Dates: start: 20070901
  5. REVLIMID [Suspect]
     Route: 048
     Dates: start: 20100301
  6. ZOLEDRONIC ACID [Suspect]
     Indication: MULTIPLE MYELOMA
  7. DEXAMETHASONE [Suspect]
     Indication: MULTIPLE MYELOMA
     Dates: start: 20060101
  8. DEXAMETHASONE [Suspect]
     Dates: start: 20070301
  9. DOXORUBICIN HYDROCHLORIDE [Suspect]
     Indication: MULTIPLE MYELOMA
     Dates: start: 20060101
  10. BORTEZOMIB [Suspect]
     Indication: MULTIPLE MYELOMA

REACTIONS (5)
  - ACUTE MYELOID LEUKAEMIA [None]
  - FATIGUE [None]
  - MYELODYSPLASTIC SYNDROME [None]
  - OSTEONECROSIS OF JAW [None]
  - PANCYTOPENIA [None]
